FAERS Safety Report 12461573 (Version 5)
Quarter: 2020Q3

REPORT INFORMATION
  Report Type: Report from Study
  Country: US (occurrence: US)
  Receive Date: 20160613
  Receipt Date: 20200908
  Transmission Date: 20201102
  Serious: Yes (Other)
  Sender: FDA-Public Use
  Company Number: US-TAKEDA-2016TUS009438

PATIENT
  Sex: Male
  Weight: 81.63 kg

DRUGS (1)
  1. VEDOLIZUMAB [Suspect]
     Active Substance: VEDOLIZUMAB
     Indication: CROHN^S DISEASE
     Dosage: 300 MILLIGRAM
     Route: 042
     Dates: start: 201507

REACTIONS (4)
  - Influenza like illness [Not Recovered/Not Resolved]
  - Squamous cell carcinoma [Unknown]
  - Colon cancer [Not Recovered/Not Resolved]
  - Limb operation [Unknown]
